FAERS Safety Report 8217375-8 (Version None)
Quarter: 2012Q1

REPORT INFORMATION
  Report Type: 
  Country: None (occurrence: None)
  Receive Date: 20120313
  Receipt Date: 20120228
  Transmission Date: 20120608
  Serious: Yes (Hospitalization)
  Sender: FDA-Public Use
  Company Number: 2012MA002892

PATIENT
  Age: 55 Year
  Sex: Female

DRUGS (5)
  1. PYOSTACINE (PRISTINAMYCIN) [Suspect]
     Indication: ERYSIPELAS
     Dosage: PO
     Route: 048
     Dates: start: 20120118, end: 20120128
  2. CLINDAMYCIN HCL [Concomitant]
  3. PIPERACILLIN AND TAZOBACTAM [Concomitant]
  4. AMOXICILLIN [Concomitant]
  5. RAMIPRIL [Suspect]
     Dosage: PO
     Route: 048
     Dates: start: 20120127, end: 20120202

REACTIONS (4)
  - CONDITION AGGRAVATED [None]
  - RENAL FAILURE [None]
  - DRUG ERUPTION [None]
  - EOSINOPHILIA [None]
